FAERS Safety Report 6141901-6 (Version None)
Quarter: 2009Q2

REPORT INFORMATION
  Report Type: 
  Country: None (occurrence: None)
  Receive Date: 20090402
  Receipt Date: 20090325
  Transmission Date: 20091009
  Serious: Yes (Other)
  Sender: FDA-Public Use
  Company Number: PHEH2008US07226

PATIENT
  Sex: Female

DRUGS (9)
  1. ZOLEDRONIC ACID [Suspect]
     Dosage: 4 MG, EVERY 6 MONTHS
     Dates: start: 20050822, end: 20071222
  2. FEMARA [Concomitant]
     Indication: BREAST CANCER
     Dosage: 2.5 MG, QD
     Dates: start: 20050822
  3. DIOVAN [Concomitant]
     Indication: BLOOD PRESSURE
     Dosage: 80/12.5 PO DAILY
  4. LIPITOR [Concomitant]
     Dosage: 10 MG, QD
     Route: 048
  5. TAMOXIFEN CITRATE [Concomitant]
     Indication: PROPHYLAXIS
     Dosage: 20 MG, QD
     Dates: start: 20030902, end: 20050821
  6. CALCIUM [Concomitant]
     Dosage: 500 MG, BID
     Dates: start: 20050822
  7. VITAMIN D [Concomitant]
     Dosage: 400 MG, QD
  8. TRICOR [Concomitant]
     Indication: BLOOD CHOLESTEROL
     Dosage: 1/2 TABLET DAILY
  9. ASPIRIN [Concomitant]
     Dosage: 81 MG, QD

REACTIONS (19)
  - DENTAL CARIES [None]
  - ENDODONTIC PROCEDURE [None]
  - ERYTHEMA [None]
  - EXOSTOSIS [None]
  - GINGIVAL INFECTION [None]
  - INFECTION [None]
  - JAW DISORDER [None]
  - ORAL CAVITY FISTULA [None]
  - ORAL DISCOMFORT [None]
  - ORAL DISORDER [None]
  - OSTEOMYELITIS [None]
  - OSTEONECROSIS [None]
  - PAIN [None]
  - PAIN IN JAW [None]
  - PURULENT DISCHARGE [None]
  - SOFT TISSUE INFECTION [None]
  - SWELLING [None]
  - TOOTH EXTRACTION [None]
  - TOOTH INFECTION [None]
